FAERS Safety Report 13934073 (Version 1)
Quarter: 2017Q3

REPORT INFORMATION
  Report Type: Spontaneous
  Country: US (occurrence: US)
  Receive Date: 20170904
  Receipt Date: 20170904
  Transmission Date: 20171127
  Serious: No
  Sender: FDA-Public Use
  Company Number: US-CELGENEUS-USA-20170809567

PATIENT
  Age: 49 Year
  Sex: Male

DRUGS (2)
  1. OTEZLA [Suspect]
     Active Substance: APREMILAST
     Indication: PSORIASIS
     Dosage: 60 MILLIGRAM
     Route: 048
     Dates: start: 20170826
  2. OTEZLA [Suspect]
     Active Substance: APREMILAST
     Indication: PSORIATIC ARTHROPATHY

REACTIONS (11)
  - Chills [Unknown]
  - Musculoskeletal chest pain [Unknown]
  - Respiratory disorder [Unknown]
  - Vomiting [Unknown]
  - Malaise [Unknown]
  - Gastrointestinal disorder [Unknown]
  - Adverse drug reaction [Unknown]
  - Diarrhoea [Unknown]
  - Feeling hot [Unknown]
  - Nausea [Unknown]
  - Pain [Unknown]

NARRATIVE: CASE EVENT DATE: 201708
